FAERS Safety Report 16831859 (Version 1)
Quarter: 2019Q4

REPORT INFORMATION
  Report Type: Spontaneous
  Country: US (occurrence: US)
  Receive Date: 20190919
  Receipt Date: 20190919
  Transmission Date: 20200122
  Serious: Yes (Life-Threatening)
  Sender: FDA-Public Use
  Company Number: None

PATIENT
  Age: 34 Year
  Sex: Female
  Weight: 114 kg

DRUGS (4)
  1. DOXORUBICIN [Suspect]
     Active Substance: DOXORUBICIN
     Dates: start: 20190905, end: 20190907
  2. IFOSFAMIDE. [Suspect]
     Active Substance: IFOSFAMIDE
  3. DEXRAZOXANE. [Suspect]
     Active Substance: DEXRAZOXANE
     Dates: start: 20190905, end: 20190907
  4. MESNA. [Suspect]
     Active Substance: MESNA
     Dates: start: 20190905, end: 20190907

REACTIONS (1)
  - Gastrointestinal necrosis [None]

NARRATIVE: CASE EVENT DATE: 20190919
